FAERS Safety Report 19790151 (Version 5)
Quarter: 2021Q4

REPORT INFORMATION
  Report Type: Spontaneous
  Country: US (occurrence: US)
  Receive Date: 20210905
  Receipt Date: 20211122
  Transmission Date: 20220303
  Serious: Yes (Hospitalization, Other)
  Sender: FDA-Public Use
  Company Number: US-GLAXOSMITHKLINE-US2021AMR183356

PATIENT
  Age: 66 Year
  Sex: Female
  Weight: 112.49 kg

DRUGS (1)
  1. ZEJULA [Suspect]
     Active Substance: NIRAPARIB
     Indication: Ovarian cancer
     Dosage: 300 MG, QD
     Dates: start: 20210719, end: 20210927

REACTIONS (5)
  - Upper respiratory tract infection [Not Recovered/Not Resolved]
  - Hallucination [Recovering/Resolving]
  - Hyponatraemia [Unknown]
  - Dysmenorrhoea [Recovered/Resolved]
  - Nasopharyngitis [Unknown]

NARRATIVE: CASE EVENT DATE: 20210730
